FAERS Safety Report 8106966 (Version 3)
Quarter: 2013Q4

REPORT INFORMATION
  Report Type: Spontaneous
  Country: US (occurrence: US)
  Receive Date: 20110825
  Receipt Date: 20131202
  Transmission Date: 20140711
  Serious: Yes (Other)
  Sender: FDA-Public Use
  Company Number: US-BAYER-2011-075690

PATIENT
  Age: 31 Year
  Sex: Female
  Weight: 54.42 kg

DRUGS (8)
  1. YASMIN [Suspect]
     Indication: CONTRACEPTION
     Dosage: UNK
     Dates: start: 2007, end: 2008
  2. YAZ [Suspect]
     Indication: CONTRACEPTION
     Dosage: UNK
     Dates: start: 2007, end: 2008
  3. MULTIVITAMIN [Concomitant]
  4. CALCIUM [Concomitant]
  5. PRIMACARE [Concomitant]
     Dosage: UNK
     Dates: start: 20081002
  6. PROMETHAZINE [Concomitant]
     Dosage: 25 MG, UNK
     Dates: start: 20081011
  7. LORTAB [Concomitant]
     Dosage: UNK
     Dates: start: 20081023
  8. PHENERGAN [Concomitant]

REACTIONS (3)
  - Gallbladder injury [Unknown]
  - Pancreatitis [Unknown]
  - Cholecystitis chronic [None]
